FAERS Safety Report 21025076 (Version 6)
Quarter: 2022Q4

REPORT INFORMATION
  Report Type: Other
  Country: CZ (occurrence: CZ)
  Receive Date: 20220629
  Receipt Date: 20221215
  Transmission Date: 20230113
  Serious: Yes (Death, Hospitalization, Other)
  Sender: FDA-Public Use
  Company Number: CZ-CELLTRION INC.-2022CZ010193

PATIENT

DRUGS (63)
  1. RITUXIMAB [Suspect]
     Active Substance: RITUXIMAB
     Indication: Diffuse large B-cell lymphoma stage IV
     Dosage: REGIMEN #1, 375 MG/M2, 1Q3W
     Route: 042
     Dates: start: 20210420, end: 20210816
  2. CYCLOPHOSPHAMIDE [Suspect]
     Active Substance: CYCLOPHOSPHAMIDE
     Indication: Diffuse large B-cell lymphoma stage IV
     Dosage: 750 MILLIGRAM/SQ. METER, EVERY 3 WEEKS (REGIMEN #1)
     Route: 042
     Dates: start: 20210420, end: 20210816
  3. DOXORUBICIN HYDROCHLORIDE [Suspect]
     Active Substance: DOXORUBICIN HYDROCHLORIDE
     Indication: Diffuse large B-cell lymphoma stage IV
     Dosage: 50 MILLIGRAM/SQ. METER, EVERY 3 WEEKS (REGIMEN #1)
     Route: 042
     Dates: start: 20210420, end: 20210816
  4. EPCORITAMAB [Suspect]
     Active Substance: EPCORITAMAB
     Indication: Diffuse large B-cell lymphoma stage IV
     Dosage: REGIMEN #1, PRIMING DOSE
     Route: 058
     Dates: start: 20210420, end: 20210420
  5. EPCORITAMAB [Suspect]
     Active Substance: EPCORITAMAB
     Dosage: REGIMEN #2, INTERMEDIATE DOSE
     Route: 058
     Dates: start: 20210426, end: 20210426
  6. EPCORITAMAB [Suspect]
     Active Substance: EPCORITAMAB
     Dosage: REGIMEN #3, FULL DOSE
     Route: 058
     Dates: start: 20210503, end: 20210719
  7. EPCORITAMAB [Suspect]
     Active Substance: EPCORITAMAB
     Dosage: REGIMEN #4, FULL DOSE, 48 MG 1Q3W
     Route: 058
     Dates: start: 20210726, end: 20210816
  8. EPCORITAMAB [Suspect]
     Active Substance: EPCORITAMAB
     Dosage: REGIMEN #5, FULL DOSE, 48 MG 1Q4W
     Route: 058
     Dates: start: 20210913, end: 20220228
  9. EPCORITAMAB [Suspect]
     Active Substance: EPCORITAMAB
     Indication: Diffuse large B-cell lymphoma stage IV
     Dosage: 48 MG, Q4W/ REGIMEN #5, FULL DOSE
     Route: 058
     Dates: start: 20210913, end: 20220228
  10. EPCORITAMAB [Suspect]
     Active Substance: EPCORITAMAB
     Dosage: 0.8 MG, QD/ REGIMEN #2, INTERMEDIATE DOSE
     Route: 058
     Dates: start: 20210426, end: 20210426
  11. EPCORITAMAB [Suspect]
     Active Substance: EPCORITAMAB
     Dosage: 48 MG, QW/ REGIMEN #3, FULL DOSE
     Route: 058
     Dates: start: 20210503, end: 20210719
  12. EPCORITAMAB [Suspect]
     Active Substance: EPCORITAMAB
     Dosage: 0.16 MG, QD/ REGIMEN #1, PRIMING DOSE
     Route: 058
     Dates: start: 20210420, end: 20210420
  13. EPCORITAMAB [Suspect]
     Active Substance: EPCORITAMAB
     Dosage: 48 MG, Q3W/ REGIMEN #4, FULL DOSE
     Route: 058
     Dates: start: 20210420, end: 20210816
  14. METHYLPREDNISOLONE [Suspect]
     Active Substance: METHYLPREDNISOLONE
     Indication: Diffuse large B-cell lymphoma stage IV
  15. METHYLPREDNISOLONE SODIUM SUCCINATE [Suspect]
     Active Substance: METHYLPREDNISOLONE SODIUM SUCCINATE
     Indication: Diffuse large B-cell lymphoma stage IV
     Dosage: REGIMEN #1, 80 MG, QD
     Route: 042
     Dates: start: 20210420, end: 20210420
  16. METHYLPREDNISOLONE SODIUM SUCCINATE [Suspect]
     Active Substance: METHYLPREDNISOLONE SODIUM SUCCINATE
     Dosage: REGIMEN #2, 80 MG, QD
     Route: 042
     Dates: start: 20210510, end: 20210510
  17. METHYLPREDNISOLONE SODIUM SUCCINATE [Suspect]
     Active Substance: METHYLPREDNISOLONE SODIUM SUCCINATE
     Dosage: REGIMEN #3, 80 MG, QD
     Route: 042
     Dates: start: 20210614, end: 20210614
  18. METHYLPREDNISOLONE SODIUM SUCCINATE [Suspect]
     Active Substance: METHYLPREDNISOLONE SODIUM SUCCINATE
     Dosage: REGIMEN #4, 80 MG, QD
     Route: 042
     Dates: start: 20210726, end: 20210726
  19. METHYLPREDNISOLONE SODIUM SUCCINATE [Suspect]
     Active Substance: METHYLPREDNISOLONE SODIUM SUCCINATE
     Dosage: REGIMEN #5, 80 MG, QD
     Route: 042
     Dates: start: 20210816, end: 20210816
  20. METHYLPREDNISOLONE SODIUM SUCCINATE [Suspect]
     Active Substance: METHYLPREDNISOLONE SODIUM SUCCINATE
     Indication: Diffuse large B-cell lymphoma stage IV
     Dosage: 80 MG, QD
     Route: 042
     Dates: start: 20210726, end: 20210726
  21. METHYLPREDNISOLONE SODIUM SUCCINATE [Suspect]
     Active Substance: METHYLPREDNISOLONE SODIUM SUCCINATE
     Dosage: 80 MG, QD
     Route: 042
     Dates: start: 20211005, end: 20211005
  22. METHYLPREDNISOLONE SODIUM SUCCINATE [Suspect]
     Active Substance: METHYLPREDNISOLONE SODIUM SUCCINATE
     Dosage: 80 MG, QD
     Route: 042
     Dates: start: 20210614, end: 20210614
  23. METHYLPREDNISOLONE SODIUM SUCCINATE [Suspect]
     Active Substance: METHYLPREDNISOLONE SODIUM SUCCINATE
     Dosage: 80 MG, QD
     Route: 042
     Dates: start: 20210816, end: 20210816
  24. METHYLPREDNISOLONE SODIUM SUCCINATE [Suspect]
     Active Substance: METHYLPREDNISOLONE SODIUM SUCCINATE
     Dosage: 80 MG, QD
     Route: 042
     Dates: start: 20210420, end: 20210420
  25. PREDNISONE [Suspect]
     Active Substance: PREDNISONE
     Indication: Diffuse large B-cell lymphoma stage IV
     Dosage: REGIMEN #1
     Route: 048
     Dates: start: 20210421, end: 20210424
  26. PREDNISONE [Suspect]
     Active Substance: PREDNISONE
     Dosage: REGIMEN #2
     Route: 048
     Dates: start: 20210511, end: 20210514
  27. PREDNISONE [Suspect]
     Active Substance: PREDNISONE
     Dosage: REGIMEN #3
     Route: 048
     Dates: start: 20210615, end: 20210618
  28. PREDNISONE [Suspect]
     Active Substance: PREDNISONE
     Dosage: REGIMEN #4
     Route: 048
     Dates: start: 20210727, end: 20210730
  29. PREDNISONE [Suspect]
     Active Substance: PREDNISONE
     Dosage: REGIMEN #5
     Route: 048
     Dates: start: 20210817, end: 20210820
  30. PREDNISONE [Suspect]
     Active Substance: PREDNISONE
     Dosage: 100 MG, QD, CUMULATIVE DOSE TO FIRST REACTION: 2000 MG
     Route: 048
     Dates: start: 20210511, end: 20210514
  31. PREDNISONE [Suspect]
     Active Substance: PREDNISONE
     Dosage: 100 MG, QD, CUMULATIVE DOSE TO FIRST REACTION: 2000 MG
     Route: 048
     Dates: start: 20210515, end: 20210518
  32. PREDNISONE [Suspect]
     Active Substance: PREDNISONE
     Dosage: 100 MG, QD, CUMULATIVE DOSE TO FIRST REACTION: 2000 MG
     Route: 048
     Dates: start: 20210817, end: 20210820
  33. PREDNISONE [Suspect]
     Active Substance: PREDNISONE
     Dosage: 100 MG, QD, CUMULATIVE DOSE TO FIRST REACTION: 2000 MG
     Route: 048
     Dates: start: 20210421, end: 20210424
  34. PREDNISONE [Suspect]
     Active Substance: PREDNISONE
     Dosage: 100 MG, QD, CUMULATIVE DOSE TO FIRST REACTION: 2000 MG
     Route: 048
     Dates: start: 20210727, end: 20210730
  35. VINCRISTINE SULFATE [Suspect]
     Active Substance: VINCRISTINE SULFATE
     Indication: Diffuse large B-cell lymphoma stage IV
     Dosage: REGIMEN #1, EVERY 3 WEEKS
     Route: 042
     Dates: start: 20210420, end: 20210816
  36. AMLODIPINE BESYLATE [Concomitant]
     Active Substance: AMLODIPINE BESYLATE
     Dosage: UNK
     Dates: start: 202006
  37. AMLODIPINE BESYLATE [Concomitant]
     Active Substance: AMLODIPINE BESYLATE
  38. SULFAMETHOXAZOLE\TRIMETHOPRIM [Concomitant]
     Active Substance: SULFAMETHOXAZOLE\TRIMETHOPRIM
     Dosage: UNK
     Dates: start: 20210414
  39. SULFAMETHOXAZOLE\TRIMETHOPRIM [Concomitant]
     Active Substance: SULFAMETHOXAZOLE\TRIMETHOPRIM
     Dosage: UNK
     Dates: start: 20210414
  40. BISULEPIN [Concomitant]
     Active Substance: BISULEPIN
     Indication: Premedication
     Dosage: 2 MG
     Route: 048
     Dates: start: 20220228, end: 20220228
  41. BISULEPIN [Concomitant]
     Active Substance: BISULEPIN
     Indication: Premedication
     Dosage: 2 MG, QD
     Route: 048
     Dates: start: 20220228, end: 20220228
  42. GRANISETRON HYDROCHLORIDE [Concomitant]
     Active Substance: GRANISETRON HYDROCHLORIDE
     Dosage: UNK
     Dates: start: 20210420
  43. GRANISETRON HYDROCHLORIDE [Concomitant]
     Active Substance: GRANISETRON HYDROCHLORIDE
     Dosage: UNK
     Route: 048
     Dates: start: 20210420
  44. POTASSIUM CHLORIDE [Concomitant]
     Active Substance: POTASSIUM CHLORIDE
     Dosage: UNK
     Dates: start: 20220413
  45. LANSOPRAZOLE [Concomitant]
     Active Substance: LANSOPRAZOLE
     Dosage: UNK
     Dates: start: 2020
  46. ALLOPURINOL [Concomitant]
     Active Substance: ALLOPURINOL
     Dosage: UNK
     Dates: start: 20210414
  47. ALLOPURINOL [Concomitant]
     Active Substance: ALLOPURINOL
     Dosage: UNK
     Dates: start: 20210414
  48. ALPRAZOLAM [Concomitant]
     Active Substance: ALPRAZOLAM
     Dosage: UNK
     Dates: start: 20210414
  49. ALPRAZOLAM [Concomitant]
     Active Substance: ALPRAZOLAM
     Dosage: UNK
     Dates: start: 20210414
  50. NOVALGIN (METAMIZOLE SODIUM) [Concomitant]
     Active Substance: METAMIZOLE SODIUM
     Dosage: UNK
     Dates: start: 20210414
  51. NOVALGIN (METAMIZOLE SODIUM) [Concomitant]
     Active Substance: METAMIZOLE SODIUM
     Dosage: UNK
     Dates: start: 20210414
  52. ACETAMINOPHEN [Concomitant]
     Active Substance: ACETAMINOPHEN
     Indication: Premedication
     Dosage: 1000 MG
     Route: 048
     Dates: start: 20220228, end: 20220228
  53. ACETAMINOPHEN [Concomitant]
     Active Substance: ACETAMINOPHEN
     Indication: Premedication
     Dosage: 1000 MG, QD
     Route: 048
     Dates: start: 20220228, end: 20220228
  54. PREDNISONE [Concomitant]
     Active Substance: PREDNISONE
     Indication: Prophylaxis
     Dosage: 100 MILLIGRAM
     Route: 048
     Dates: start: 20210503, end: 20210503
  55. PREDNISONE [Concomitant]
     Active Substance: PREDNISONE
     Dosage: 100 MILLIGRAM
     Route: 048
     Dates: start: 20210427, end: 20210429
  56. PREDNISONE [Concomitant]
     Active Substance: PREDNISONE
     Dosage: 100 MILLIGRAM
     Route: 048
     Dates: start: 20220228, end: 20220228
  57. PREDNISONE [Concomitant]
     Active Substance: PREDNISONE
     Indication: Prophylaxis
     Dosage: 100 MG
     Route: 048
     Dates: start: 20210503, end: 20210503
  58. PREDNISONE [Concomitant]
     Active Substance: PREDNISONE
     Dosage: 100 MG
     Route: 048
     Dates: start: 20210427, end: 20210429
  59. PREDNISONE [Concomitant]
     Active Substance: PREDNISONE
     Dosage: 100 MG
     Route: 048
     Dates: start: 20220228, end: 20220228
  60. VALACYCLOVIR HYDROCHLORIDE [Concomitant]
     Active Substance: VALACYCLOVIR HYDROCHLORIDE
     Dosage: UNK
     Dates: start: 20210414
  61. VALACYCLOVIR HYDROCHLORIDE [Concomitant]
     Active Substance: VALACYCLOVIR HYDROCHLORIDE
     Dosage: UNK
     Dates: start: 20210414
  62. ZALDIAR [Concomitant]
     Active Substance: ACETAMINOPHEN\TRAMADOL HYDROCHLORIDE
     Dosage: UNK
     Dates: start: 2018
  63. ZALDIAR [Concomitant]
     Active Substance: ACETAMINOPHEN\TRAMADOL HYDROCHLORIDE
     Dosage: UNK

REACTIONS (3)
  - COVID-19 pneumonia [Fatal]
  - Multiple organ dysfunction syndrome [Fatal]
  - COVID-19 pneumonia [Not Recovered/Not Resolved]

NARRATIVE: CASE EVENT DATE: 20220311
